FAERS Safety Report 21767992 (Version 1)
Quarter: 2022Q4

REPORT INFORMATION
  Report Type: Spontaneous
  Country: EG (occurrence: EG)
  Receive Date: 20221222
  Receipt Date: 20221222
  Transmission Date: 20230112
  Serious: Yes (Life-Threatening, Hospitalization)
  Sender: FDA-Public Use
  Company Number: EG-002147023-NVSC2022EG296393

PATIENT
  Sex: Female

DRUGS (2)
  1. CEFTRIAXONE SODIUM [Suspect]
     Active Substance: CEFTRIAXONE SODIUM
     Indication: Antibiotic therapy
     Dosage: 0.4 ML (114MG) (CEFTRIAXONE POWDER DISSOLVED IN 3.5 ML OF 1% LIDOCAINE HYDROCHLORIDE SOLUTION, THEN
     Route: 058
     Dates: start: 20221203
  2. LIDOCAINE HYDROCHLORIDE [Suspect]
     Active Substance: LIDOCAINE HYDROCHLORIDE
     Indication: Product used for unknown indication
     Dosage: 0.4 ML (114MG) (CEFTRIAXONE POWDER DISSOLVED IN 3.5 ML OF 1% LIDOCAINE HYDROCHLORIDE SOLUTION)
     Route: 058
     Dates: start: 20221203

REACTIONS (1)
  - Anaphylactic shock [Recovering/Resolving]

NARRATIVE: CASE EVENT DATE: 20221203
